FAERS Safety Report 9786191 (Version 3)
Quarter: 2014Q1

REPORT INFORMATION
  Report Type: Spontaneous
  Country: US (occurrence: US)
  Receive Date: 20131227
  Receipt Date: 20140123
  Transmission Date: 20141002
  Serious: Yes (Death, Other)
  Sender: FDA-Public Use
  Company Number: US-CELGENEUS-163-21880-13073853

PATIENT
  Age: 81 Year
  Sex: Female

DRUGS (8)
  1. REVLIMID [Suspect]
     Indication: CHRONIC LYMPHOCYTIC LEUKAEMIA
     Dosage: 15 MILLIGRAM
     Route: 048
     Dates: start: 20130523, end: 20130530
  2. REVLIMID [Suspect]
     Indication: DIFFUSE LARGE B-CELL LYMPHOMA
  3. ALEVE [Concomitant]
     Indication: PRODUCT USED FOR UNKNOWN INDICATION
     Route: 065
  4. COUMADIN [Concomitant]
     Indication: THROMBOSIS
     Route: 065
  5. CIPROFLOXACIN [Concomitant]
     Indication: PRODUCT USED FOR UNKNOWN INDICATION
     Dosage: 1000 MILLIGRAM
     Route: 048
  6. PACKED RED BLOOD CELLS [Concomitant]
     Indication: TRANSFUSION
     Route: 041
     Dates: start: 20130529, end: 20130529
  7. PACKED RED BLOOD CELLS [Concomitant]
     Route: 041
     Dates: start: 20130610, end: 20130610
  8. ACCOLATE [Concomitant]
     Indication: PRODUCT USED FOR UNKNOWN INDICATION
     Dosage: 40 MILLIGRAM
     Route: 065

REACTIONS (5)
  - Chronic lymphocytic leukaemia [Fatal]
  - Diffuse large B-cell lymphoma [Fatal]
  - Pancytopenia [Unknown]
  - Performance status decreased [Unknown]
  - Infection [Unknown]
